FAERS Safety Report 8783825 (Version 1)
Quarter: 2012Q4

REPORT INFORMATION
  Report Type: 
  Country: JP (occurrence: JP)
  Receive Date: 20120913
  Receipt Date: 20120913
  Transmission Date: 20130627
  Serious: Yes (Other)
  Sender: FDA-Public Use
  Company Number: JP-B.I. PHARMACEUTICALS,INC./RIDGEFIELD-2012-BP-22531YA

PATIENT
  Age: 59 Year
  Sex: Male

DRUGS (5)
  1. TAMSULOSINA [Suspect]
     Dosage: 0.2 mg
     Route: 048
     Dates: start: 20120810
  2. GASTER [Suspect]
     Dosage: 20 mg
     Route: 048
     Dates: start: 20120810
  3. MICARDIS [Suspect]
     Dosage: 40 mg
     Route: 048
     Dates: start: 2006
  4. LIVALO (PITAVASTAIN CALCIUM) [Concomitant]
     Dates: start: 2006
  5. JANUVIA (SITAGLIPTIN PHOSPHATE) [Concomitant]
     Dates: start: 2006

REACTIONS (1)
  - Ageusia [Unknown]
